FAERS Safety Report 7746298-3 (Version None)
Quarter: 2011Q3

REPORT INFORMATION
  Report Type: 
  Country: None (occurrence: None)
  Receive Date: 20110913
  Receipt Date: 20110826
  Transmission Date: 20111222
  Serious: Yes (Hospitalization)
  Sender: FDA-Public Use
  Company Number: US-ROCHE-801670

PATIENT
  Age: 66 Year
  Sex: Female

DRUGS (2)
  1. ACTEMRA [Suspect]
     Route: 065
  2. ACTEMRA [Suspect]
     Route: 065

REACTIONS (1)
  - TRANSIENT ISCHAEMIC ATTACK [None]
